FAERS Safety Report 19840498 (Version 1)
Quarter: 2021Q3

REPORT INFORMATION
  Report Type: Report from Study
  Country: NL (occurrence: NL)
  Receive Date: 20210915
  Receipt Date: 20210915
  Transmission Date: 20211014
  Serious: Yes (Hospitalization)
  Sender: FDA-Public Use
  Company Number: NL-JNJFOC-20210915720

PATIENT
  Sex: Male

DRUGS (2)
  1. THIOSIX [Suspect]
     Active Substance: THIOGUANINE ANHYDROUS
     Indication: CROHN^S DISEASE
     Dosage: 20 MILLIGRAM DAILY;
     Route: 064
  2. REMICADE [Suspect]
     Active Substance: INFLIXIMAB
     Indication: CROHN^S DISEASE
     Route: 064

REACTIONS (3)
  - Hypotonia [Recovered/Resolved]
  - Moaning [Recovered/Resolved]
  - Foetal exposure during pregnancy [Unknown]
